FAERS Safety Report 5847109-3 (Version None)
Quarter: 2008Q3

REPORT INFORMATION
  Report Type: 
  Country: None (occurrence: None)
  Receive Date: 20080815
  Receipt Date: 20080811
  Transmission Date: 20090109
  Serious: Yes (Hospitalization, Other)
  Sender: FDA-Public Use
  Company Number: GB-ABBOTT-08P-167-0452592-00

PATIENT
  Sex: Male

DRUGS (5)
  1. HUMIRA [Suspect]
     Indication: RHEUMATOID ARTHRITIS
     Route: 058
     Dates: start: 20080121, end: 20080424
  2. METHOTREXATE [Concomitant]
     Indication: RHEUMATOID ARTHRITIS
     Route: 058
     Dates: start: 20000121, end: 20080424
  3. INSULIN [Concomitant]
     Indication: DIABETES MELLITUS
     Route: 058
     Dates: start: 20070101
  4. PREDNISOLONE [Concomitant]
     Indication: RHEUMATOID ARTHRITIS
     Route: 048
     Dates: start: 20080121
  5. OMEPRAZOLE [Concomitant]
     Indication: DYSPEPSIA
     Route: 048
     Dates: start: 20070101

REACTIONS (4)
  - ANGIOPATHY [None]
  - LEUKOCYTOCLASTIC VASCULITIS [None]
  - LUNG NEOPLASM [None]
  - PLEURAL EFFUSION [None]
